FAERS Safety Report 6442087-0 (Version None)
Quarter: 2009Q4

REPORT INFORMATION
  Report Type: 
  Country: None (occurrence: None)
  Receive Date: 20091116
  Receipt Date: 20091102
  Transmission Date: 20100525
  Serious: Yes (Other)
  Sender: FDA-Public Use
  Company Number: PHHY2009CA48321

PATIENT
  Sex: Female

DRUGS (4)
  1. CLOZARIL [Suspect]
     Dosage: UNK
     Dates: start: 20030514
  2. VALPROIC ACID [Concomitant]
  3. CLONAZEPAM [Concomitant]
  4. INFLUENZA VACCINE [Concomitant]

REACTIONS (2)
  - AGRANULOCYTOSIS [None]
  - CERVIX CARCINOMA [None]
